FAERS Safety Report 5157464-8 (Version None)
Quarter: 2006Q4

REPORT INFORMATION
  Report Type: 
  Country: None (occurrence: None)
  Receive Date: 20061127
  Receipt Date: 20061116
  Transmission Date: 20070319
  Serious: Yes (Life-Threatening, Hospitalization, Other)
  Sender: FDA-Public Use
  Company Number: IT-AVENTIS-200621908GDDC

PATIENT
  Age: 44 Year
  Sex: Female

DRUGS (2)
  1. METRONIDAZOLE [Suspect]
     Indication: RESPIRATORY TRACT INFECTION
  2. PIPERACILLIN [Suspect]
     Indication: RESPIRATORY TRACT INFECTION

REACTIONS (1)
  - TOXIC EPIDERMAL NECROLYSIS [None]
